FAERS Safety Report 6832263-7 (Version None)
Quarter: 2010Q3

REPORT INFORMATION
  Report Type: 
  Country: None (occurrence: None)
  Receive Date: 20100712
  Receipt Date: 20100702
  Transmission Date: 20110219
  Serious: Yes (Hospitalization, Other)
  Sender: FDA-Public Use
  Company Number: US-ABBOTT-10P-163-0655185-00

PATIENT
  Age: 42 Year
  Sex: Male

DRUGS (2)
  1. HUMIRA [Suspect]
     Indication: CROHN'S DISEASE
  2. PENTASA [Concomitant]
     Indication: CROHN'S DISEASE

REACTIONS (4)
  - ABSCESS [None]
  - FISTULA [None]
  - LYMPHADENOPATHY [None]
  - PSYCHOTIC DISORDER [None]
